FAERS Safety Report 5670706-5 (Version None)
Quarter: 2008Q1

REPORT INFORMATION
  Report Type: 
  Country: None (occurrence: None)
  Receive Date: 20080318
  Receipt Date: 20080317
  Transmission Date: 20080703
  Serious: Yes (Other)
  Sender: FDA-Public Use
  Company Number: A0713811A

PATIENT
  Age: 54 Year
  Sex: Female

DRUGS (1)
  1. ALLI [Suspect]
     Dosage: 2CAP PER DAY
     Dates: start: 20071201, end: 20080204

REACTIONS (15)
  - BACK PAIN [None]
  - BLOOD URINE PRESENT [None]
  - CHROMATURIA [None]
  - DIARRHOEA [None]
  - FAECAL VOLUME INCREASED [None]
  - GROIN PAIN [None]
  - KIDNEY INFECTION [None]
  - MUSCLE SPASMS [None]
  - NAUSEA [None]
  - NEPHROLITHIASIS [None]
  - PHARMACEUTICAL PRODUCT COMPLAINT [None]
  - RENAL PAIN [None]
  - THERAPEUTIC RESPONSE UNEXPECTED [None]
  - URINE ABNORMALITY [None]
  - WHITE BLOOD CELLS URINE [None]
